FAERS Safety Report 7265863-3 (Version None)
Quarter: 2011Q1

REPORT INFORMATION
  Report Type: 
  Country: None (occurrence: None)
  Receive Date: 20110131
  Receipt Date: 20110126
  Transmission Date: 20110831
  Serious: Yes (Other)
  Sender: FDA-Public Use
  Company Number: A0910029A

PATIENT
  Sex: Male

DRUGS (2)
  1. LOVAZA [Suspect]
     Dosage: 3CAP PER DAY
     Route: 065
  2. PLAVIX [Suspect]
     Route: 065

REACTIONS (5)
  - DISABILITY [None]
  - DEPRESSION [None]
  - MYALGIA [None]
  - DIARRHOEA [None]
  - ABDOMINAL DISCOMFORT [None]
